FAERS Safety Report 15310920 (Version 2)
Quarter: 2018Q3

REPORT INFORMATION
  Report Type: Spontaneous
  Country: US (occurrence: US)
  Receive Date: 20180823
  Receipt Date: 20180826
  Transmission Date: 20181010
  Serious: Yes (Death, Other)
  Sender: FDA-Public Use
  Company Number: US-JNJFOC-20180811645

PATIENT
  Sex: Male
  Weight: 67.13 kg

DRUGS (1)
  1. ZYTIGA [Suspect]
     Active Substance: ABIRATERONE ACETATE
     Indication: PROSTATE CANCER METASTATIC
     Route: 048
     Dates: end: 201805

REACTIONS (3)
  - Drug ineffective [Unknown]
  - Product size issue [Unknown]
  - Prostate cancer metastatic [Fatal]
